FAERS Safety Report 20193406 (Version 1)
Quarter: 2021Q4

REPORT INFORMATION
  Report Type: Report from Study
  Country: MX (occurrence: MX)
  Receive Date: 20211216
  Receipt Date: 20211216
  Transmission Date: 20220303
  Serious: Yes (Death, Hospitalization, Other)
  Sender: FDA-Public Use
  Company Number: MX-BAYER-2021A269210

PATIENT
  Age: 63 Year
  Sex: Male

DRUGS (1)
  1. NEXAVAR [Suspect]
     Active Substance: SORAFENIB
     Indication: Hepatocellular carcinoma
     Dosage: 200 MG, BID
     Route: 048
     Dates: start: 20200325, end: 20211127

REACTIONS (7)
  - Organ failure [Fatal]
  - Gastrointestinal haemorrhage [None]
  - Seizure [None]
  - Abdominal cavity drainage [None]
  - Disorientation [Not Recovered/Not Resolved]
  - Hypoglycaemia [None]
  - Endotracheal intubation [None]

NARRATIVE: CASE EVENT DATE: 20211106
